FAERS Safety Report 5442689-4 (Version None)
Quarter: 2007Q3

REPORT INFORMATION
  Report Type: 
  Country: None (occurrence: None)
  Receive Date: 20070731
  Receipt Date: 20070614
  Transmission Date: 20080115
  Serious: No
  Sender: FDA-Public Use
  Company Number: US200706003569

PATIENT
  Age: 43 Year
  Sex: Female

DRUGS (6)
  1. BYETTA [Suspect]
     Indication: TYPE 2 DIABETES MELLITUS
     Dosage: 10 UG, 2/D, SUBCUTANEOUS
     Route: 058
     Dates: start: 20060101, end: 20070518
  2. EXENATIDE PEN, DISPOSABLE DEVICE (EXENATIDE PEN [Concomitant]
  3. METFORMIN HCL [Concomitant]
  4. ACTOS [Concomitant]
  5. ALBUTEROL [Concomitant]
  6. REQUIP [Concomitant]

REACTIONS (4)
  - HYPOTHYROIDISM [None]
  - IMPAIRED GASTRIC EMPTYING [None]
  - URINARY TRACT INFECTION [None]
  - WEIGHT INCREASED [None]
